FAERS Safety Report 9370337 (Version 1)
Quarter: 2013Q2

REPORT INFORMATION
  Report Type: Spontaneous
  Country: FR (occurrence: FR)
  Receive Date: 20130626
  Receipt Date: 20130626
  Transmission Date: 20140414
  Serious: Yes (Other)
  Sender: FDA-Public Use
  Company Number: FR-BRISTOL-MYERS SQUIBB COMPANY-19025667

PATIENT
  Age: 62 Year
  Sex: Female

DRUGS (15)
  1. ONGLYZA TABS [Suspect]
     Route: 048
     Dates: start: 201301, end: 20130423
  2. SERETIDE [Interacting]
     Dates: start: 2008, end: 20130423
  3. PLAVIX [Interacting]
     Route: 048
  4. ISOPTINE [Interacting]
     Route: 048
  5. TAHOR [Interacting]
     Route: 048
     Dates: start: 2013
  6. SPIRIVA [Interacting]
  7. SINGULAIR [Interacting]
     Route: 048
  8. OGAST [Interacting]
  9. BECLOMETASONE [Concomitant]
     Dates: start: 20130423
  10. FORMOTEROL [Concomitant]
     Dates: start: 20130423
  11. COAPROVEL [Concomitant]
  12. LASILIX [Concomitant]
  13. CORVASAL [Concomitant]
     Route: 048
  14. METFORMIN [Concomitant]
     Route: 048
  15. VENTOLINE [Concomitant]

REACTIONS (4)
  - Hypogammaglobulinaemia [Recovered/Resolved]
  - Lung disorder [Recovered/Resolved]
  - Cushing^s syndrome [Recovered/Resolved]
  - Drug interaction [Recovered/Resolved]
